FAERS Safety Report 16657910 (Version 1)
Quarter: 2019Q3

REPORT INFORMATION
  Report Type: Spontaneous
  Country: US (occurrence: US)
  Receive Date: 20190801
  Receipt Date: 20190801
  Transmission Date: 20191004
  Serious: No
  Sender: FDA-Public Use
  Company Number: US-IBSA PHARMA-TIR-2019-0219

PATIENT
  Age: 72 Year
  Sex: Female

DRUGS (3)
  1. TIROSINT [Suspect]
     Active Substance: LEVOTHYROXINE SODIUM
     Indication: HYPOTHYROIDISM
     Dosage: 13MCG DAILY
     Route: 048
     Dates: start: 2015, end: 2017
  2. TIROSINT [Suspect]
     Active Substance: LEVOTHYROXINE SODIUM
     Indication: HYPOTHYROIDISM
     Dosage: 25MCG DAILY
     Route: 048
     Dates: start: 2017, end: 201901
  3. TIROSINT [Suspect]
     Active Substance: LEVOTHYROXINE SODIUM
     Dosage: 25MCG DAILY
     Route: 048
     Dates: start: 201901, end: 20190301

REACTIONS (10)
  - Hypersensitivity [Unknown]
  - Supraventricular tachycardia [Recovered/Resolved]
  - Drug level below therapeutic [Unknown]
  - Palpitations [Recovered/Resolved]
  - Fatigue [Not Recovered/Not Resolved]
  - Hypotension [Unknown]
  - Presyncope [Unknown]
  - Rash [Unknown]
  - Hypothyroidism [Unknown]
  - Feeling cold [Unknown]

NARRATIVE: CASE EVENT DATE: 2017
